FAERS Safety Report 17373000 (Version 1)
Quarter: 2020Q1

REPORT INFORMATION
  Report Type: Spontaneous
  Country: FR (occurrence: FR)
  Receive Date: 20200205
  Receipt Date: 20200205
  Transmission Date: 20200409
  Serious: Yes (Hospitalization)
  Sender: FDA-Public Use
  Company Number: NVSC2020FR022921

PATIENT
  Age: 45 Year
  Sex: Male

DRUGS (4)
  1. PIRILENE [Suspect]
     Active Substance: PYRAZINAMIDE
     Indication: TUBERCULOSIS
     Dosage: 2000 MG, QD
     Route: 048
     Dates: start: 20190610, end: 20190722
  2. RIMIFON [Suspect]
     Active Substance: ISONIAZID
     Indication: TUBERCULOSIS
     Dosage: 500 MG, QD
     Route: 048
     Dates: start: 20190610, end: 20190726
  3. RIMACTAN [Suspect]
     Active Substance: RIFAMPIN
     Indication: TUBERCULOSIS
     Dosage: 1200 MG, QD
     Route: 065
     Dates: start: 20190616, end: 20190725
  4. MOXIFLOXACINE [Suspect]
     Active Substance: MOXIFLOXACIN
     Indication: TUBERCULOSIS
     Dosage: 400 MG, QD
     Route: 048
     Dates: start: 20190804, end: 20190809

REACTIONS (1)
  - Hepatocellular injury [Recovered/Resolved]

NARRATIVE: CASE EVENT DATE: 20190722
